FAERS Safety Report 4799382-0 (Version None)
Quarter: 2005Q4

REPORT INFORMATION
  Report Type: 
  Country: None (occurrence: None)
  Receive Date: 20051014
  Receipt Date: 20051004
  Transmission Date: 20060501
  Serious: Yes (Hospitalization, Disabling)
  Sender: FDA-Public Use
  Company Number: US-MERCK-0510USA04798

PATIENT
  Age: 46 Year
  Sex: Female
  Weight: 75 kg

DRUGS (10)
  1. GABITRIL [Concomitant]
     Route: 065
  2. SINGULAIR [Concomitant]
     Route: 065
  3. ZETIA [Concomitant]
     Route: 065
  4. PREMARIN [Concomitant]
     Route: 065
  5. PRILOSEC [Concomitant]
     Route: 065
  6. ASPIRIN [Concomitant]
     Route: 065
  7. VIOXX [Suspect]
     Indication: FIBROMYALGIA
     Route: 048
     Dates: start: 20040101, end: 20040901
  8. VIOXX [Suspect]
     Indication: ARTHRITIS
     Route: 048
     Dates: start: 20040101, end: 20040901
  9. TYLENOL (CAPLET) [Concomitant]
     Route: 065
  10. SULAR [Concomitant]
     Route: 065

REACTIONS (23)
  - ANXIETY [None]
  - ARTHRALGIA [None]
  - ASTHENIA [None]
  - AURA [None]
  - CEREBRAL INFARCTION [None]
  - CEREBROVASCULAR ACCIDENT [None]
  - CHEST PAIN [None]
  - CONFUSIONAL STATE [None]
  - DEPRESSION [None]
  - DIZZINESS [None]
  - DRUG HYPERSENSITIVITY [None]
  - FATIGUE [None]
  - FIBROMYALGIA [None]
  - HEADACHE [None]
  - HYPERTENSION [None]
  - INTERVERTEBRAL DISC DISORDER [None]
  - NAUSEA [None]
  - NECK PAIN [None]
  - OSTEOPENIA [None]
  - RESPIRATION ABNORMAL [None]
  - SENSATION OF HEAVINESS [None]
  - VENTRICULAR HYPERTROPHY [None]
  - WHITE BLOOD CELL COUNT INCREASED [None]
